FAERS Safety Report 22949736 (Version 2)
Quarter: 2023Q4

REPORT INFORMATION
  Report Type: Report from Study
  Country: US (occurrence: US)
  Receive Date: 20230915
  Receipt Date: 20231007
  Transmission Date: 20240109
  Serious: Yes (Death)
  Sender: FDA-Public Use
  Company Number: US-002147023-NVSC2023US200293

PATIENT
  Sex: Male

DRUGS (1)
  1. LEQVIO [Suspect]
     Active Substance: INCLISIRAN SODIUM
     Indication: Hyperlipidaemia
     Dosage: 284 MG (SINGLE SUBCUTANEOUS INJECTION INITIALLY, AGAIN AT 3 MONTHS, AND THEN EVERY 6 MONTHS)
     Route: 058
     Dates: start: 20221220, end: 20230320

REACTIONS (1)
  - Death [Fatal]
